FAERS Safety Report 10904797 (Version 2)
Quarter: 2015Q2

REPORT INFORMATION
  Report Type: Spontaneous
  Country: BE (occurrence: None)
  Receive Date: 20150306
  Receipt Date: 20150422
  Transmission Date: 20150821
  Serious: Yes (Other)
  Sender: FDA-Public Use
  Company Number: FK201501051

PATIENT
  Age: 70 Year
  Sex: Female
  Weight: 64 kg

DRUGS (14)
  1. PACLITAXEL 6MG/ML CONCENTRATE FOR SOLUTION FOR INFUSION (PACLITAXEL) (PACLITAXEL)? [Suspect]
     Active Substance: PACLITAXEL
     Indication: OVARIAN CANCER
     Dosage: 80 MG/M2,  1 IN 21 D, INTRAVENOUS (NOT OTHERWISE SPECIFIED)
     Route: 042
     Dates: start: 20140829, end: 20150225
  2. CARBOPLATIN (CARBOPLATIN) [Suspect]
     Active Substance: CARBOPLATIN
     Indication: OVARIAN CANCER
     Dosage: DAY 1, INTRAVENOUS (NOT OTHERWISE SPECIFIED)
     Route: 042
     Dates: start: 20140829, end: 20150225
  3. KEPPRA [Concomitant]
     Active Substance: LEVETIRACETAM
  4. ALENDRONATE (ALENDRONATE SODIUM) [Concomitant]
     Active Substance: ALENDRONATE SODIUM
  5. SIMVASTATIN (SIMVASTATIN) [Concomitant]
     Active Substance: SIMVASTATIN
  6. MIRTAZAPINE (MIRTAZAPINE) [Concomitant]
     Active Substance: MIRTAZAPINE
  7. INNOHEP [Concomitant]
     Active Substance: TINZAPARIN SODIUM
  8. D-CURE (COLECALCIFEROL) [Concomitant]
  9. BISOPROLOL (BISOPROLOL) [Concomitant]
     Active Substance: BISOPROLOL
  10. OMIC (TAMSULOSIN HYDROCHLORIDE) [Concomitant]
  11. TRADONAL (TRAMADOL HYDROCHLORIDE) [Concomitant]
  12. MOTILIUM (DOMPERIDONE) [Concomitant]
  13. CALCIUM (CALCIUM) [Concomitant]
     Active Substance: CALCIUM
  14. L-THYROXINE (LEVOTHYROXINE) [Concomitant]
     Active Substance: LEVOTHYROXINE

REACTIONS (14)
  - Vomiting [None]
  - Hot flush [None]
  - Anxiety [None]
  - Ascites [None]
  - Hypoglycaemia [None]
  - Seizure [None]
  - Infusion related reaction [None]
  - Headache [None]
  - Chills [None]
  - Febrile neutropenia [None]
  - Disease recurrence [None]
  - Abdominal pain [None]
  - Pain in extremity [None]
  - Oedema peripheral [None]

NARRATIVE: CASE EVENT DATE: 20150204
